FAERS Safety Report 7191171-5 (Version None)
Quarter: 2010Q4

REPORT INFORMATION
  Report Type: 
  Country: None (occurrence: None)
  Receive Date: 20101223
  Receipt Date: 20101208
  Transmission Date: 20110411
  Serious: Yes (Hospitalization, Other)
  Sender: FDA-Public Use
  Company Number: US-ROCHE-727482

PATIENT
  Sex: Male
  Weight: 68 kg

DRUGS (1)
  1. ACCUTANE [Suspect]
     Indication: ACNE
     Route: 065
     Dates: start: 19860101, end: 19890101

REACTIONS (8)
  - CROHN'S DISEASE [None]
  - ENTEROCUTANEOUS FISTULA [None]
  - GASTROINTESTINAL INJURY [None]
  - INFLAMMATORY BOWEL DISEASE [None]
  - LARGE INTESTINAL STRICTURE [None]
  - LARGE INTESTINE PERFORATION [None]
  - ORAL HERPES [None]
  - SMALL INTESTINAL OBSTRUCTION [None]
